FAERS Safety Report 7760716-6 (Version None)
Quarter: 2011Q3

REPORT INFORMATION
  Report Type: 
  Country: None (occurrence: None)
  Receive Date: 20110919
  Receipt Date: 20110427
  Transmission Date: 20111222
  Serious: No
  Sender: FDA-Public Use
  Company Number: US-BAYER-2011-038852

PATIENT
  Age: 63 Year
  Sex: Female

DRUGS (2)
  1. MAGNEVIST [Suspect]
     Indication: NUCLEAR MAGNETIC RESONANCE IMAGING
     Dosage: UNK, ONCE
     Dates: start: 20110412
  2. MAGNEVIST [Suspect]
     Dosage: 14 CC'S, LEFT ANTICUBITAL ONCE
     Route: 042
     Dates: start: 20110412, end: 20110412

REACTIONS (2)
  - ASTHENIA [None]
  - ABDOMINAL PAIN [None]
